FAERS Safety Report 24885424 (Version 1)
Quarter: 2025Q1

REPORT INFORMATION
  Report Type: Spontaneous
  Country: US (occurrence: US)
  Receive Date: 20250124
  Receipt Date: 20250124
  Transmission Date: 20250408
  Serious: No
  Sender: GENERICUS
  Company Number: US-GENERICUS, INC.-2024GNR00003

PATIENT

DRUGS (1)
  1. TOBRAMYCIN [Suspect]
     Active Substance: TOBRAMYCIN
     Indication: Respiratory disorder
     Dosage: 300 MG (1 VIAL), 2X/DAY FOR 14 DAYS ON AND 14 DAYS OFF

REACTIONS (2)
  - Ear infection [Unknown]
  - Off label use [Not Recovered/Not Resolved]

NARRATIVE: CASE EVENT DATE: 20240101
